FAERS Safety Report 8498816-8 (Version None)
Quarter: 2012Q3

REPORT INFORMATION
  Report Type: 
  Country: None (occurrence: None)
  Receive Date: 20120710
  Receipt Date: 20120705
  Transmission Date: 20120928
  Serious: Yes (Hospitalization)
  Sender: FDA-Public Use
  Company Number: AU-AMGEN-AUSSP2012037655

PATIENT
  Age: 19 Year
  Sex: Male

DRUGS (4)
  1. CISPLATIN [Concomitant]
     Indication: GERM CELL CANCER
  2. NEULASTA [Suspect]
     Indication: NEUTROPENIA
  3. ETOPOSIDE [Concomitant]
     Indication: GERM CELL CANCER
  4. BLEOMYCIN SULFATE [Concomitant]
     Indication: GERM CELL CANCER

REACTIONS (2)
  - PANCYTOPENIA [None]
  - NO THERAPEUTIC RESPONSE [None]
